FAERS Safety Report 22278283 (Version 1)
Quarter: 2023Q2

REPORT INFORMATION
  Report Type: Spontaneous
  Country: DK (occurrence: DK)
  Receive Date: 20230503
  Receipt Date: 20230503
  Transmission Date: 20230722
  Serious: Yes (Death, Hospitalization, Other)
  Sender: FDA-Public Use
  Company Number: None

PATIENT
  Age: 84 Year
  Sex: Female
  Weight: 90 kg

DRUGS (5)
  1. ELIQUIS [Suspect]
     Active Substance: APIXABAN
     Indication: Thrombosis prophylaxis
     Dosage: FREQUENCY TIME: 1 DAY?STRENGTH 5 MG
     Route: 048
     Dates: start: 20210913
  2. FUROSEMIDE [Concomitant]
     Active Substance: FUROSEMIDE
     Indication: Diuretic therapy
     Dates: start: 20220318
  3. LANSOPRAM [Concomitant]
     Indication: Gastrooesophageal reflux disease
     Dates: start: 20190311
  4. METOPROLOL SUCCINATE [Concomitant]
     Active Substance: METOPROLOL SUCCINATE
     Indication: Hypertension
     Dates: start: 20220419
  5. RAMIPRIL [Concomitant]
     Active Substance: RAMIPRIL
     Indication: Hypertension
     Dates: start: 20220418

REACTIONS (5)
  - Muscular weakness [Fatal]
  - Altered state of consciousness [Fatal]
  - Headache [Fatal]
  - Cerebral haemorrhage [Fatal]
  - Dysarthria [Fatal]

NARRATIVE: CASE EVENT DATE: 20230416
